FAERS Safety Report 8111860-5 (Version None)
Quarter: 2012Q1

REPORT INFORMATION
  Report Type: 
  Country: None (occurrence: None)
  Receive Date: 20120203
  Receipt Date: 20120201
  Transmission Date: 20120608
  Serious: Yes (Other)
  Sender: FDA-Public Use
  Company Number: US-PFIZER INC-2012028425

PATIENT
  Sex: Female
  Weight: 76 kg

DRUGS (4)
  1. LEVOTHYROXINE [Concomitant]
     Dosage: UNK
  2. BENADRYL [Concomitant]
     Indication: SLEEP DISORDER
     Dosage: UNK
  3. DEXAMETHASONE [Concomitant]
     Dosage: UNK
  4. LIPITOR [Suspect]
     Indication: BLOOD CHOLESTEROL INCREASED
     Dosage: 10 MG, 1X/DAY
     Route: 048
     Dates: start: 20110101, end: 20110101

REACTIONS (2)
  - FOOD ALLERGY [None]
  - COELIAC DISEASE [None]
